FAERS Safety Report 17880190 (Version 1)
Quarter: 2020Q2

REPORT INFORMATION
  Report Type: Spontaneous
  Country: DE (occurrence: DE)
  Receive Date: 20200610
  Receipt Date: 20200610
  Transmission Date: 20200714
  Serious: Yes (Hospitalization)
  Sender: FDA-Public Use
  Company Number: DE-ACCORD-184806

PATIENT
  Age: 55 Year
  Sex: Female
  Weight: 80 kg

DRUGS (5)
  1. CLONAZEPAM. [Concomitant]
     Active Substance: CLONAZEPAM
     Dosage: 0.5 MG, 1-0-1-0
     Route: 048
  2. ONDANSETRON [Concomitant]
     Active Substance: ONDANSETRON
     Dosage: 4 MG, AS REQUIRED, ORODISPERSIBLE TABLETS
  3. PACLITAXEL/PACLITAXEL LIPOSOME [Suspect]
     Active Substance: PACLITAXEL
     Indication: PRODUCT USED FOR UNKNOWN INDICATION
     Dosage: NK NK, NK
  4. IBUPROFEN. [Concomitant]
     Active Substance: IBUPROFEN
     Dosage: NK NK, AS REQUIRED
  5. QUETIAPINE/QUETIAPINE FUMARATE [Concomitant]
     Active Substance: QUETIAPINE FUMARATE
     Dosage: 50 MG, 0-0-0-1, TABLET
     Route: 048

REACTIONS (6)
  - General physical health deterioration [Unknown]
  - Pyrexia [Unknown]
  - Dry throat [Unknown]
  - Localised infection [Unknown]
  - Nasal congestion [Unknown]
  - Cough [Unknown]
